FAERS Safety Report 5726561-8 (Version None)
Quarter: 2008Q2

REPORT INFORMATION
  Report Type: 
  Country: None (occurrence: None)
  Receive Date: 20080502
  Receipt Date: 20080422
  Transmission Date: 20081010
  Serious: Yes (Other)
  Sender: FDA-Public Use
  Company Number: FR-GILEAD-2008-0016214

PATIENT
  Sex: Male
  Weight: 72 kg

DRUGS (10)
  1. VIREAD [Suspect]
     Indication: HIV INFECTION
     Route: 048
     Dates: start: 20030211
  2. REYATAZ [Suspect]
     Indication: HIV INFECTION
     Route: 048
     Dates: start: 20060613
  3. EPIVIR [Suspect]
     Route: 048
     Dates: start: 19961008
  4. VIRACEPT [Suspect]
     Dates: start: 20000114, end: 20010420
  5. ZERIT [Concomitant]
     Dates: start: 19961008, end: 20030211
  6. AGENERASE [Concomitant]
     Dates: start: 20010913, end: 20041012
  7. NORVIR [Concomitant]
     Dates: start: 20060918, end: 20070316
  8. ASPIRIN [Concomitant]
     Dates: start: 20070727
  9. TRIATEC [Concomitant]
     Dates: start: 20040901
  10. AMLOR [Concomitant]
     Dates: start: 20060101

REACTIONS (1)
  - ANOGENITAL DYSPLASIA [None]
